FAERS Safety Report 5793009-7 (Version None)
Quarter: 2008Q2

REPORT INFORMATION
  Report Type: 
  Country: None (occurrence: None)
  Receive Date: 20080627
  Receipt Date: 20080620
  Transmission Date: 20081010
  Serious: Yes (Death, Hospitalization)
  Sender: FDA-Public Use
  Company Number: PHBS2006JP10798

PATIENT
  Age: 51 Year
  Sex: Male

DRUGS (5)
  1. BASILIXIMAB [Suspect]
     Indication: RENAL TRANSPLANT
     Dosage: 20 MG, ONCE/SINGLE
     Route: 042
     Dates: start: 20040303, end: 20040303
  2. BASILIXIMAB [Suspect]
     Dosage: 20 MG, ONCE/SINGLE
     Route: 042
     Dates: start: 20040307, end: 20040307
  3. TACROLIMUS [Suspect]
     Indication: RENAL TRANSPLANT
  4. MYCOPHENOLATE MOFETIL [Suspect]
     Indication: RENAL TRANSPLANT
     Dates: start: 20040227, end: 20051201
  5. MEDROL [Concomitant]
     Indication: RENAL TRANSPLANT

REACTIONS (5)
  - FEELING HOT [None]
  - LYMPHOPROLIFERATIVE DISORDER [None]
  - METASTASES TO LUNG [None]
  - PNEUMONITIS CHEMICAL [None]
  - T-CELL LYMPHOMA [None]
